FAERS Safety Report 4988676-1 (Version None)
Quarter: 2006Q2

REPORT INFORMATION
  Report Type: 
  Country: None (occurrence: None)
  Receive Date: 20060502
  Receipt Date: 20050929
  Transmission Date: 20061013
  Serious: Yes (Hospitalization)
  Sender: FDA-Public Use
  Company Number: US-MERCK-0510USA00571

PATIENT
  Age: 59 Year
  Sex: Female
  Weight: 86 kg

DRUGS (12)
  1. VIOXX [Suspect]
     Indication: ARTHRALGIA
     Route: 048
     Dates: start: 20030228, end: 20031101
  2. VIOXX [Suspect]
     Indication: BACK PAIN
     Route: 048
     Dates: start: 20030228, end: 20031101
  3. ASPIRIN [Concomitant]
     Route: 048
  4. ACCUPRIL [Concomitant]
     Route: 048
  5. AMARYL [Concomitant]
     Route: 048
  6. CIMETIDINE [Concomitant]
     Route: 048
  7. ISOSORBIDE MONONITRATE [Concomitant]
     Route: 048
  8. LOPRESSOR [Concomitant]
     Route: 048
  9. NEURONTIN [Concomitant]
     Route: 065
  10. NITROSTAT [Concomitant]
     Route: 065
  11. PRAVACHOL [Concomitant]
     Route: 048
  12. TAGAMET [Concomitant]
     Route: 048

REACTIONS (5)
  - DEPRESSION [None]
  - MUSCULOSKELETAL DISCOMFORT [None]
  - MYOCARDIAL INFARCTION [None]
  - PAIN IN EXTREMITY [None]
  - SPINAL COLUMN STENOSIS [None]
